FAERS Safety Report 12816540 (Version 1)
Quarter: 2016Q4

REPORT INFORMATION
  Report Type: Spontaneous
  Country: US (occurrence: US)
  Receive Date: 20161006
  Receipt Date: 20161006
  Transmission Date: 20170207
  Serious: No
  Sender: FDA-Public Use
  Company Number: US-NOVEN PHARMACEUTICALS, INC.-US2016000268

PATIENT

DRUGS (2)
  1. ATENOLOL. [Concomitant]
     Active Substance: ATENOLOL
     Indication: ARRHYTHMIA
  2. COMBIPATCH [Suspect]
     Active Substance: ESTRADIOL\NORETHINDRONE ACETATE
     Indication: ATROPHIC VULVOVAGINITIS
     Dosage: 0.05/0.14 MG, UNKNOWN
     Route: 062
     Dates: start: 2015

REACTIONS (3)
  - Breast swelling [Unknown]
  - Breast tenderness [Unknown]
  - Breast pain [Unknown]
